FAERS Safety Report 12248630 (Version 1)
Quarter: 2016Q2

REPORT INFORMATION
  Report Type: Spontaneous
  Country: US (occurrence: US)
  Receive Date: 20160408
  Receipt Date: 20160408
  Transmission Date: 20160815
  Serious: No
  Sender: FDA-Public Use
  Company Number: US-PFIZER INC-2016162685

PATIENT
  Age: 64 Year
  Sex: Female

DRUGS (22)
  1. ATIVAN [Concomitant]
     Active Substance: LORAZEPAM
     Dosage: 0.5 MG, 2X/DAY (FOR ONE WEEK)
     Route: 048
  2. REMERON [Concomitant]
     Active Substance: MIRTAZAPINE
     Dosage: 15 MG, 1X/DAY (NIGHTLY)
     Route: 048
  3. FEMARA [Concomitant]
     Active Substance: LETROZOLE
     Dosage: 2.5 MG, 1X/DAY
     Route: 048
  4. IBRANCE [Suspect]
     Active Substance: PALBOCICLIB
     Indication: BREAST CANCER
     Dosage: 125 MG, CYCLIC (21 DAYS ON, 7 DAYS OFF)
     Route: 048
  5. NACL [Concomitant]
     Active Substance: SODIUM CHLORIDE
     Dosage: 1000 ML, UNK [TWICE WEEKLY X 12 WEEKLY AT HOME WITH HHC]
     Route: 042
  6. TYLENOL EXTRA STRENGTH [Concomitant]
     Active Substance: ACETAMINOPHEN
     Dosage: UNK UNK, AS NEEDED  (500 MG; TAKE 1-2 TABLETS BY MOUTH TWO TIMES DAILY AS NEEDED)
     Route: 048
  7. PROVIGIL [Concomitant]
     Active Substance: MODAFINIL
     Dosage: 100 MG, 1X/DAY
     Route: 048
  8. PRILOSEC [Concomitant]
     Active Substance: OMEPRAZOLE MAGNESIUM
     Dosage: 20 MG, 1X/DAY
     Route: 048
  9. ATIVAN [Concomitant]
     Active Substance: LORAZEPAM
     Dosage: 0.5 MG, UNK (AS DIRECTED)
     Route: 048
  10. IRON [Concomitant]
     Active Substance: IRON
     Dosage: 65 MG, 1X/DAY (FERROUS SULFATE 325MG (65 MG))
     Route: 048
  11. ZYPREXA [Concomitant]
     Active Substance: OLANZAPINE
     Dosage: 5 MG, 1X/DAY [NIGHTLY]
     Route: 048
  12. REMERON [Concomitant]
     Active Substance: MIRTAZAPINE
     Dosage: 30 MG, 1X/DAY (NIGHTLY)
     Route: 048
  13. PROTONIX [Concomitant]
     Active Substance: PANTOPRAZOLE SODIUM
     Dosage: 40 MG, 2X/DAY (BEFORE BREAKFAST AOD DINNER)
     Route: 048
  14. SENOKOT-S [Concomitant]
     Active Substance: DOCUSATE SODIUM\SENNOSIDES
     Dosage: 1 DF, 2X/DAY
     Route: 048
  15. MIRALAX [Concomitant]
     Active Substance: POLYETHYLENE GLYCOL 3350
     Dosage: 17 MG, 1X/DAY
     Route: 048
  16. OMEGA 3 [Concomitant]
     Active Substance: OMEGA-3 FATTY ACIDS
     Dosage: UNK
     Route: 048
  17. KLONOPIN [Concomitant]
     Active Substance: CLONAZEPAM
     Dosage: 1 MG, 2X/DAY
     Route: 048
  18. KLONOPIN [Concomitant]
     Active Substance: CLONAZEPAM
     Dosage: 1 MG, 1X/DAY (NIGHTLY)
  19. ZYPREXA [Concomitant]
     Active Substance: OLANZAPINE
     Indication: NAUSEA
     Dosage: 2.5 MG, AS NEEDED [DAILY]
     Route: 048
  20. ATIVAN [Concomitant]
     Active Substance: LORAZEPAM
     Dosage: 0.5 MG, 1X/DAY (AT NOON THE FOLLOWING WEEK)
     Route: 048
  21. LYNPARZA [Concomitant]
     Active Substance: OLAPARIB
     Dosage: 400 MG, 2X/DAY [50 MG; 8 CAPS]
     Route: 048
  22. VITAMIN D [Concomitant]
     Active Substance: CHOLECALCIFEROL
     Dosage: UNK, DAILY
     Route: 048

REACTIONS (2)
  - Blood pressure increased [Unknown]
  - Heart rate increased [Unknown]
